FAERS Safety Report 16141497 (Version 1)
Quarter: 2019Q2

REPORT INFORMATION
  Report Type: Spontaneous
  Country: GB (occurrence: GB)
  Receive Date: 20190401
  Receipt Date: 20190401
  Transmission Date: 20190711
  Serious: Yes (Hospitalization, Other)
  Sender: FDA-Public Use
  Company Number: GB-IBIGEN-2019.06209

PATIENT
  Age: 86 Year
  Sex: Male

DRUGS (15)
  1. METFORMIN [Concomitant]
     Active Substance: METFORMIN HYDROCHLORIDE
     Indication: TYPE 2 DIABETES MELLITUS
  2. RAMIPRIL. [Concomitant]
     Active Substance: RAMIPRIL
  3. BIPHASIC INSULIN [Concomitant]
     Indication: TYPE 2 DIABETES MELLITUS
  4. CEFTRIAXONE. [Concomitant]
     Active Substance: CEFTRIAXONE
     Indication: SEPSIS
  5. FLUCLOXACILLIN [Suspect]
     Active Substance: FLUCLOXACILLIN
     Indication: STAPHYLOCOCCAL BACTERAEMIA
     Route: 042
  6. VITAMIN D NOS [Concomitant]
     Active Substance: VITAMIN D NOS
  7. SITAGLIPTIN [Concomitant]
     Active Substance: SITAGLIPTIN
  8. THIAMINE. [Concomitant]
     Active Substance: THIAMINE
  9. CALCIUM CARBONATE. [Concomitant]
     Active Substance: CALCIUM CARBONATE
  10. CRYSTALLOID FLUIDS [Concomitant]
     Indication: SEPSIS
     Route: 042
  11. GENTAMICIN. [Concomitant]
     Active Substance: GENTAMICIN
     Indication: SEPSIS
     Dosage: ONCE ONLY
  12. LOW MOLECULAR WEIGHT HEPARIN [Concomitant]
     Active Substance: UNSPECIFIED INGREDIENT
     Indication: PROPHYLAXIS
  13. VITAMIN B6 [Concomitant]
     Active Substance: PYRIDOXINE HYDROCHLORIDE
  14. PARACETAMOL [Interacting]
     Active Substance: ACETAMINOPHEN
     Indication: SEPSIS
     Route: 048
  15. MIRTAZAPINE. [Concomitant]
     Active Substance: MIRTAZAPINE

REACTIONS (22)
  - Acute kidney injury [Unknown]
  - Urinary retention [Unknown]
  - Delirium [Unknown]
  - Bladder dilatation [Unknown]
  - Normocytic anaemia [Unknown]
  - Metabolic acidosis [Recovering/Resolving]
  - Respiratory rate increased [Unknown]
  - Crepitations [Unknown]
  - Wheezing [Unknown]
  - Hypotension [Unknown]
  - Neutrophilia [Unknown]
  - Septic shock [Unknown]
  - Confusional state [Unknown]
  - Pollakiuria [Unknown]
  - Pyrexia [Unknown]
  - Hyponatraemia [Unknown]
  - Leukocytosis [Unknown]
  - Hyperglycaemia [Unknown]
  - Blood osmolarity increased [Unknown]
  - Respiratory failure [Recovering/Resolving]
  - C-reactive protein increased [Unknown]
  - Drug interaction [Recovering/Resolving]
